FAERS Safety Report 9165320 (Version 1)
Quarter: 2013Q1

REPORT INFORMATION
  Report Type: Spontaneous
  Country: GB (occurrence: None)
  Receive Date: 20130228
  Receipt Date: 20130228
  Transmission Date: 20140127
  Serious: Yes (Disabling, Other)
  Sender: FDA-Public Use
  Company Number: GER/UKI/13/0028228

PATIENT
  Age: 38 Year
  Sex: Male
  Weight: 105 kg

DRUGS (4)
  1. RISPERIDONE (RISPERIDONE) [Suspect]
     Indication: SCHIZOPHRENIA, PARANOID TYPE
     Route: 048
     Dates: start: 20121126, end: 20130115
  2. IBUPROFEN (IBUPROFEN) [Concomitant]
  3. NICOTINE (NICOTINE) [Concomitant]
  4. PARACETAMOL (PARACETAMOL) [Concomitant]

REACTIONS (3)
  - Myalgia [None]
  - Blood creatine phosphokinase increased [None]
  - Mobility decreased [None]
